FAERS Safety Report 13760445 (Version 2)
Quarter: 2017Q3

REPORT INFORMATION
  Report Type: Spontaneous
  Country: US (occurrence: US)
  Receive Date: 20170717
  Receipt Date: 20170823
  Transmission Date: 20171127
  Serious: Yes (Hospitalization)
  Sender: FDA-Public Use
  Company Number: US-JNJFOC-20170709389

PATIENT
  Sex: Female

DRUGS (2)
  1. TRILAFON [Suspect]
     Active Substance: PERPHENAZINE
     Indication: SCHIZOPHRENIA
     Route: 048
     Dates: start: 20170627, end: 20170703
  2. INVEGA SUSTENNA [Suspect]
     Active Substance: PALIPERIDONE PALMITATE
     Indication: SCHIZOPHRENIA
     Route: 030
     Dates: start: 20170623, end: 20170711

REACTIONS (2)
  - Rhabdomyolysis [Unknown]
  - Anal incontinence [Unknown]
